FAERS Safety Report 6825145-8 (Version None)
Quarter: 2010Q3

REPORT INFORMATION
  Report Type: 
  Country: None (occurrence: None)
  Receive Date: 20100708
  Receipt Date: 20070116
  Transmission Date: 20110219
  Serious: Yes (Other)
  Sender: FDA-Public Use
  Company Number: US-PFIZER INC-2007002017

PATIENT
  Age: 46 Year
  Sex: Female
  Weight: 56.2 kg

DRUGS (6)
  1. CHANTIX [Suspect]
     Indication: SMOKING CESSATION THERAPY
     Dates: start: 20061101
  2. XANAX [Concomitant]
  3. MONTELUKAST [Concomitant]
  4. SPIRIVA [Concomitant]
  5. ADVAIR DISKUS 100/50 [Concomitant]
  6. ALL OTHER THERAPEUTIC PRODUCTS [Concomitant]

REACTIONS (9)
  - ABNORMAL DREAMS [None]
  - BRONCHITIS [None]
  - HEADACHE [None]
  - HYPOTENSION [None]
  - INFLUENZA LIKE ILLNESS [None]
  - LETHARGY [None]
  - NAUSEA [None]
  - NEGATIVE THOUGHTS [None]
  - NIGHT SWEATS [None]
